FAERS Safety Report 4430661-2 (Version None)
Quarter: 2004Q3

REPORT INFORMATION
  Report Type: 
  Country: None (occurrence: None)
  Receive Date: 20040818
  Receipt Date: 20040810
  Transmission Date: 20050211
  Serious: Yes (Hospitalization)
  Sender: FDA-Public Use
  Company Number: 2004AP04162

PATIENT
  Age: 24 Year
  Sex: Female

DRUGS (4)
  1. SEROQUEL [Suspect]
     Dosage: 75 MG DAILY PO
     Route: 048
     Dates: start: 20040729, end: 20040802
  2. PAXIL [Concomitant]
  3. TOLEDOMIN [Concomitant]
  4. ANAFRANIL [Concomitant]

REACTIONS (1)
  - SEROTONIN SYNDROME [None]
